FAERS Safety Report 7047052-0 (Version None)
Quarter: 2010Q4

REPORT INFORMATION
  Report Type: 
  Country: None (occurrence: None)
  Receive Date: 20101015
  Receipt Date: 20101007
  Transmission Date: 20110411
  Serious: Yes (Death, Other)
  Sender: FDA-Public Use
  Company Number: US-SANOFI-AVENTIS-2010SA061719

PATIENT
  Age: 78 Year
  Sex: Female

DRUGS (34)
  1. LOVENOX [Suspect]
     Route: 065
  2. HEPARIN [Suspect]
     Route: 065
     Dates: start: 20080303, end: 20080310
  3. NPH INSULIN [Concomitant]
  4. HUMULIN R [Concomitant]
  5. WARFARIN SODIUM [Concomitant]
  6. AMIODARONE HCL [Concomitant]
  7. PROVENTIL [Concomitant]
  8. ANTIBIOTICS [Concomitant]
  9. METOLAZONE [Concomitant]
  10. PANTOPRAZOLE [Concomitant]
  11. VANCOMYCIN [Concomitant]
  12. FUROSEMIDE [Concomitant]
  13. ZOSYN [Concomitant]
  14. GUAIFENESIN [Concomitant]
  15. METHYLPREDNISOLONE [Concomitant]
     Dates: start: 20080306, end: 20080307
  16. MOXIFLOXACIN [Concomitant]
  17. ALBUTEROL [Concomitant]
  18. SOLU-CORTEF [Concomitant]
  19. AMLODIPINE [Concomitant]
  20. SIMVASTATIN [Concomitant]
  21. ASPIRIN [Concomitant]
  22. NICARDIPINE HYDROCHLORIDE [Concomitant]
  23. PROCARDIA [Concomitant]
  24. HYDROCHLOROTHIAZIDE [Concomitant]
  25. COREG [Concomitant]
  26. VASOTEC [Concomitant]
  27. LASIX [Concomitant]
  28. POTASSIUM CHLORIDE [Concomitant]
  29. PROPOFOL [Concomitant]
  30. MAGNESIUM SULFATE [Concomitant]
  31. NEUTRA-PHOS [Concomitant]
     Dates: start: 20080309, end: 20080312
  32. MEPERIDINE HCL [Concomitant]
  33. POTASSIUM CHLORIDE/SODIUM CHLORIDE [Concomitant]
  34. POTASSIUM [Concomitant]

REACTIONS (10)
  - ACUTE RESPIRATORY DISTRESS SYNDROME [None]
  - ASTHENIA [None]
  - HYPOTENSION [None]
  - MULTI-ORGAN FAILURE [None]
  - PANCYTOPENIA [None]
  - RENAL FAILURE [None]
  - RESPIRATORY FAILURE [None]
  - SEPSIS [None]
  - SEPTIC SHOCK [None]
  - UNRESPONSIVE TO STIMULI [None]
